FAERS Safety Report 4398570-5 (Version None)
Quarter: 2004Q3

REPORT INFORMATION
  Report Type: 
  Country: None (occurrence: None)
  Receive Date: 20040712
  Receipt Date: 20040629
  Transmission Date: 20050211
  Serious: Yes (Other)
  Sender: FDA-Public Use
  Company Number: 2001080776JP

PATIENT
  Age: 84 Year
  Sex: Male

DRUGS (6)
  1. CABERGOLINE [Suspect]
     Indication: PARKINSON'S DISEASE
     Dosage: 0.25 MG, QD, ORAL
     Route: 048
     Dates: end: 20011105
  2. LISINOPRIL [Concomitant]
  3. TICLOPIDINE HCL [Concomitant]
  4. FUROSEMIDE [Concomitant]
  5. SENNOSIDE A (SENNOSIDE A) [Concomitant]
  6. CARBIDOPA AND LEVODOPA [Concomitant]

REACTIONS (2)
  - DEHYDRATION [None]
  - NEUROLEPTIC MALIGNANT SYNDROME [None]
